FAERS Safety Report 7776137-6 (Version None)
Quarter: 2011Q3

REPORT INFORMATION
  Report Type: 
  Country: None (occurrence: None)
  Receive Date: 20110926
  Receipt Date: 20110920
  Transmission Date: 20111222
  Serious: Yes (Life-Threatening, Hospitalization, Other)
  Sender: FDA-Public Use
  Company Number: PE-BRISTOL-MYERS SQUIBB COMPANY-16009177

PATIENT
  Age: 69 Year
  Sex: Male
  Weight: 59 kg

DRUGS (12)
  1. ATORVASTATIN [Concomitant]
     Dates: start: 20100824
  2. AMITRIPTYLINE HCL [Concomitant]
     Route: 048
     Dates: start: 20110410
  3. ENALAPRIL MALEATE [Concomitant]
     Dates: start: 20100715
  4. NPH INSULIN [Suspect]
     Indication: TYPE 2 DIABETES MELLITUS
     Dosage: 20IU:10APR-08MAY11, 16IU:09MAY-05JUN11, 12IU:06JUN-03JUL11, 14IU:04JUL-ONG.
     Route: 058
     Dates: start: 20110410
  5. GLYBURIDE [Suspect]
     Indication: TYPE 2 DIABETES MELLITUS
     Dosage: 1DF: 5MG/DL
     Dates: start: 20110516
  6. SAXAGLIPTIN [Suspect]
     Indication: TYPE 2 DIABETES MELLITUS
     Dosage: INTERRUPTED ON 24AUG2011(LAST DOSE)
     Route: 048
     Dates: start: 20100826
  7. ASPIRIN [Concomitant]
     Dates: start: 20100708
  8. SODIUM CHLORIDE [Concomitant]
     Dates: start: 20110810, end: 20110810
  9. FLUOXETINE [Concomitant]
     Dates: start: 20110810, end: 20110824
  10. METFORMIN HCL [Suspect]
     Indication: TYPE 2 DIABETES MELLITUS
  11. BLINDED: PLACEBO [Suspect]
     Indication: TYPE 2 DIABETES MELLITUS
     Dosage: INTERRUPTED ON 24AUG2011(LAST DOSE)
     Route: 048
     Dates: start: 20100826
  12. CLONAZEPAM [Concomitant]
     Dates: start: 20110718

REACTIONS (3)
  - DIABETES MELLITUS [None]
  - INFECTIOUS PERITONITIS [None]
  - RETROPERITONEAL NEOPLASM [None]
